FAERS Safety Report 10488186 (Version 1)
Quarter: 2014Q4

REPORT INFORMATION
  Report Type: Spontaneous
  Country: GR (occurrence: GR)
  Receive Date: 20141002
  Receipt Date: 20141002
  Transmission Date: 20150528
  Serious: Yes (Other)
  Sender: FDA-Public Use
  Company Number: GR-ORION CORPORATION ORION PHARMA-ENTC2014-0353

PATIENT
  Sex: Female

DRUGS (2)
  1. STALEVO [Suspect]
     Active Substance: CARBIDOPA\ENTACAPONE\LEVODOPA
     Dosage: STRENGTH: 150 MG/UNK/UNK
     Route: 065
  2. STALEVO [Suspect]
     Active Substance: CARBIDOPA\ENTACAPONE\LEVODOPA
     Dosage: STRENGTH: 175 MG/UNK/UNK
     Route: 065

REACTIONS (3)
  - Cardiac disorder [Unknown]
  - Abdominal discomfort [Unknown]
  - Syncope [Unknown]
